FAERS Safety Report 16370814 (Version 1)
Quarter: 2019Q2

REPORT INFORMATION
  Report Type: Report from Study
  Country: PL (occurrence: PL)
  Receive Date: 20190530
  Receipt Date: 20190530
  Transmission Date: 20190711
  Serious: Yes (Other)
  Sender: FDA-Public Use
  Company Number: PL-ADIENNEP-2019AD000288

PATIENT
  Age: 4 Year
  Sex: Male

DRUGS (3)
  1. MELPHALAN. [Suspect]
     Active Substance: MELPHALAN
     Indication: AUTOLOGOUS HAEMATOPOIETIC STEM CELL TRANSPLANT
     Dosage: 70 MG/M2 DAILY
  2. TREOSULFAN [Suspect]
     Active Substance: TREOSULFAN
     Indication: AUTOLOGOUS HAEMATOPOIETIC STEM CELL TRANSPLANT
     Dosage: DAILY
  3. THIOTEPA. [Suspect]
     Active Substance: THIOTEPA
     Indication: AUTOLOGOUS HAEMATOPOIETIC STEM CELL TRANSPLANT
     Dosage: 2 DOSAGES 5 MG/KG

REACTIONS (2)
  - Neutropenia [Unknown]
  - Leukopenia [Unknown]
